FAERS Safety Report 7997385-6 (Version None)
Quarter: 2011Q4

REPORT INFORMATION
  Report Type: 
  Country: None (occurrence: None)
  Receive Date: 20111221
  Receipt Date: 20111215
  Transmission Date: 20120403
  Serious: Yes (Life-Threatening)
  Sender: FDA-Public Use
  Company Number: US-CELGENEUS-163-21880-11063218

PATIENT
  Sex: Male

DRUGS (5)
  1. REVLIMID [Suspect]
     Indication: BRAIN STEM GLIOMA
     Dosage: 40 MILLIGRAM
     Route: 048
     Dates: start: 20110601, end: 20110803
  2. SPRYCEL [Concomitant]
     Indication: GLIOMATOSIS CEREBRI
     Dosage: 62.5 MILLIGRAM
     Route: 065
     Dates: start: 20110601, end: 20110803
  3. TEMODAR [Concomitant]
     Indication: GLIOMATOSIS CEREBRI
     Dosage: 75 MILLIGRAM
     Route: 065
     Dates: start: 20110601
  4. CALCIUM +VIT D [Concomitant]
     Indication: SUPPLEMENTATION THERAPY
     Dosage: 1 TABLET
     Route: 048
     Dates: start: 20110501
  5. KEPPRA [Concomitant]
     Dosage: 100 MILLIGRAM
     Route: 048
     Dates: start: 20110501

REACTIONS (3)
  - DIARRHOEA [None]
  - BRAIN STEM GLIOMA [None]
  - DECREASED APPETITE [None]
